FAERS Safety Report 9772476 (Version 1)
Quarter: 2013Q4

REPORT INFORMATION
  Report Type: Spontaneous
  Country: CA (occurrence: None)
  Receive Date: 20131217
  Receipt Date: 20131217
  Transmission Date: 20140711
  Serious: Yes (Death, Other)
  Sender: FDA-Public Use
  Company Number: SYM-2013-14072

PATIENT
  Age: 81 Year
  Sex: Male

DRUGS (1)
  1. CICLOPIROX OLAMINE [Suspect]
     Indication: NEOPLASM MALIGNANT
     Dosage: ONCE DAILY FOR 5 DAYS, INCREASING DOSES
     Route: 048

REACTIONS (7)
  - Nausea [None]
  - Diarrhoea [None]
  - Vomiting [None]
  - Abdominal pain [None]
  - Inflammatory bowel disease [None]
  - Renal failure acute [None]
  - Dyspnoea [None]
